FAERS Safety Report 5452532-5 (Version None)
Quarter: 2007Q3

REPORT INFORMATION
  Report Type: 
  Country: None (occurrence: None)
  Receive Date: 20070914
  Receipt Date: 20070830
  Transmission Date: 20080115
  Serious: Yes (Other)
  Sender: FDA-Public Use
  Company Number: CN-BAYER-200714044GDS

PATIENT
  Age: 3 Year
  Sex: Male

DRUGS (2)
  1. ASPIRIN [Suspect]
     Indication: KAWASAKI'S DISEASE
     Dosage: UNIT DOSE: 200 MG
     Route: 048
     Dates: start: 20070628, end: 20070704
  2. ASPIRIN [Suspect]
     Indication: KAWASAKI'S DISEASE
     Dosage: UNIT DOSE: 200 MG
     Route: 048
     Dates: start: 20070705

REACTIONS (2)
  - HEARING IMPAIRED [None]
  - UNRESPONSIVE TO STIMULI [None]
